FAERS Safety Report 5847017-8 (Version None)
Quarter: 2008Q3

REPORT INFORMATION
  Report Type: 
  Country: None (occurrence: None)
  Receive Date: 20080815
  Receipt Date: 20080804
  Transmission Date: 20090109
  Serious: Yes (Other)
  Sender: FDA-Public Use
  Company Number: IE-PFIZER INC-2008062451

PATIENT
  Sex: Male
  Weight: 100 kg

DRUGS (6)
  1. LIPITOR [Suspect]
     Route: 048
     Dates: start: 20080128, end: 20080614
  2. CARDICOR [Suspect]
  3. INNOVACE [Concomitant]
  4. PLAVIX [Concomitant]
  5. LANSOPRAZOLE [Concomitant]
  6. CARDIAC THERAPY [Concomitant]

REACTIONS (3)
  - ERECTILE DYSFUNCTION [None]
  - INSOMNIA [None]
  - LIBIDO DECREASED [None]
